FAERS Safety Report 15227815 (Version 3)
Quarter: 2025Q1

REPORT INFORMATION
  Report Type: Spontaneous
  Country: US (occurrence: US)
  Receive Date: 20180801
  Receipt Date: 20250129
  Transmission Date: 20250409
  Serious: Yes (Other)
  Sender: PFIZER
  Company Number: US-PFIZER INC-2018302638

PATIENT

DRUGS (1)
  1. METHOTREXATE SODIUM [Suspect]
     Active Substance: METHOTREXATE SODIUM
     Dosage: GREATER THAN 15 MG, WEEKLY
     Route: 064

REACTIONS (2)
  - Maternal exposure before pregnancy [Unknown]
  - Foetal chromosome abnormality [Unknown]
